FAERS Safety Report 5077833-4 (Version None)
Quarter: 2006Q3

REPORT INFORMATION
  Report Type: 
  Country: None (occurrence: None)
  Receive Date: 20060810
  Receipt Date: 20060612
  Transmission Date: 20061208
  Serious: Yes (Death, Hospitalization)
  Sender: FDA-Public Use
  Company Number: GBWYE719812JUN06

PATIENT
  Sex: Female
  Weight: 65 kg

DRUGS (8)
  1. ENBREL [Suspect]
     Indication: RHEUMATOID ARTHRITIS
     Route: 058
     Dates: start: 20060331, end: 20060522
  2. CANDESARTAN [Concomitant]
     Dosage: 8MG DAILY
     Route: 048
  3. BISOPROLOL FUMARATE [Concomitant]
     Dosage: 5MG DAILY
     Route: 048
  4. CITALOPRAM [Concomitant]
     Dosage: 20MG DAILY
     Route: 048
  5. ZOMORPH [Concomitant]
     Route: 048
  6. ACETAMINOPHEN [Concomitant]
     Route: 048
  7. LEVOTHYROXINE SODIUM [Concomitant]
     Dosage: 150MG DAILY
     Route: 048
  8. PRAVASTATIN [Concomitant]
     Dosage: 40MG NIGHTLY
     Route: 048

REACTIONS (7)
  - ABSCESS [None]
  - CONFUSIONAL STATE [None]
  - EMPYEMA [None]
  - METABOLIC ACIDOSIS [None]
  - MULTI-ORGAN FAILURE [None]
  - PSEUDOMONAS INFECTION [None]
  - SEPSIS [None]
